FAERS Safety Report 23320995 (Version 1)
Quarter: 2023Q4

REPORT INFORMATION
  Report Type: Spontaneous
  Country: US (occurrence: US)
  Receive Date: 20231220
  Receipt Date: 20231220
  Transmission Date: 20240109
  Serious: Yes (Hospitalization)
  Sender: FDA-Public Use
  Company Number: US-GLAXOSMITHKLINE-US2023AMR146854

PATIENT
  Sex: Female

DRUGS (1)
  1. BREXAFEMME [Suspect]
     Active Substance: IBREXAFUNGERP CITRATE
     Indication: Product used for unknown indication
     Dosage: UNK

REACTIONS (9)
  - Vomiting [Unknown]
  - Illness [Unknown]
  - Blood pressure decreased [Unknown]
  - Dysstasia [Unknown]
  - Dizziness [Unknown]
  - Visual impairment [Unknown]
  - Vision blurred [Unknown]
  - Gait disturbance [Unknown]
  - Recalled product administered [Unknown]
